FAERS Safety Report 6745656-3 (Version None)
Quarter: 2010Q2

REPORT INFORMATION
  Report Type: 
  Country: None (occurrence: None)
  Receive Date: 20100528
  Receipt Date: 20100520
  Transmission Date: 20101027
  Serious: Yes (Hospitalization)
  Sender: FDA-Public Use
  Company Number: IT-ASTRAZENECA-2010SE23508

PATIENT
  Age: 26305 Day
  Sex: Male

DRUGS (2)
  1. NAROPINA [Suspect]
     Indication: INTERVERTEBRAL DISC PROTRUSION
     Route: 052
     Dates: start: 20100513, end: 20100513
  2. DEPO MEDRAL+LIDOCAINE [Suspect]
     Indication: INTERVERTEBRAL DISC PROTRUSION
     Dosage: 80MG + 20 MG
     Route: 052
     Dates: start: 20100513, end: 20100513

REACTIONS (3)
  - ACUTE MYOCARDIAL INFARCTION [None]
  - CIRCULATORY COLLAPSE [None]
  - ERYTHEMA [None]
